FAERS Safety Report 8982959 (Version 4)
Quarter: 2013Q2

REPORT INFORMATION
  Report Type: Report from Study
  Country: SE (occurrence: SE)
  Receive Date: 20121224
  Receipt Date: 20130424
  Transmission Date: 20140414
  Serious: Yes (Death)
  Sender: FDA-Public Use
  Company Number: SE-BRISTOL-MYERS SQUIBB COMPANY-17218082

PATIENT
  Age: 73 Year
  Sex: Female

DRUGS (13)
  1. CETUXIMAB [Suspect]
     Indication: HEAD AND NECK CANCER
     Dosage: RECENT DOSE-05DEC12
     Dates: start: 20121107, end: 20121205
  2. CARBOPLATIN [Suspect]
     Indication: HEAD AND NECK CANCER
     Dosage: MOST RECENT DOSE: 28NOV12
     Dates: start: 20121107, end: 20121128
  3. PACLITAXEL [Suspect]
     Indication: HEAD AND NECK CANCER
     Dosage: MOST RECENT DOSE: 28NOV12
     Dates: start: 20121107, end: 20121128
  4. OMEPRAZOLE [Concomitant]
  5. METFORMIN [Concomitant]
  6. MAGNESIUM HYDROXIDE [Concomitant]
  7. TRAMADOL [Concomitant]
  8. ZOLPIDEM [Concomitant]
  9. CITALOPRAM [Concomitant]
  10. METRONIDAZOLE [Concomitant]
  11. CLOTRIMAZOLE [Concomitant]
  12. BETAMETHASONE [Concomitant]
  13. CLINDAMYCIN [Concomitant]

REACTIONS (1)
  - Bronchopneumonia [Fatal]
